FAERS Safety Report 12943012 (Version 2)
Quarter: 2016Q4

REPORT INFORMATION
  Report Type: Report from Study
  Country: None (occurrence: FR)
  Receive Date: 20161115
  Receipt Date: 20161116
  Transmission Date: 20170207
  Serious: Yes (Other)
  Sender: FDA-Public Use
  Company Number: FR-ABBVIE-16P-056-1776636-00

PATIENT
  Age: 63 Year
  Sex: Male

DRUGS (6)
  1. VENETOCLAX [Suspect]
     Active Substance: VENETOCLAX
     Indication: CHRONIC LYMPHOCYTIC LEUKAEMIA
     Route: 048
     Dates: end: 20161020
  2. RAMIPRIL. [Concomitant]
     Active Substance: RAMIPRIL
     Indication: CARDIOMYOPATHY
     Route: 048
     Dates: start: 20160401
  3. PLAVIX [Concomitant]
     Active Substance: CLOPIDOGREL BISULFATE
     Indication: CARDIAC FAILURE
     Route: 048
     Dates: start: 20060101
  4. KARDEGIC [Concomitant]
     Active Substance: ASPIRIN LYSINE
     Indication: CARDIAC FAILURE
     Route: 048
     Dates: start: 19960101
  5. VALACICLOVIR [Concomitant]
     Active Substance: VALACYCLOVIR HYDROCHLORIDE
     Indication: INFECTION PROPHYLAXIS
     Dates: start: 20150701
  6. BACTRIM [Concomitant]
     Active Substance: SULFAMETHOXAZOLE\TRIMETHOPRIM
     Indication: PROPHYLAXIS
     Dates: start: 20151001

REACTIONS (3)
  - Disease progression [Not Recovered/Not Resolved]
  - Richter^s syndrome [Not Recovered/Not Resolved]
  - Therapy cessation [Unknown]

NARRATIVE: CASE EVENT DATE: 20161020
